FAERS Safety Report 23081315 (Version 8)
Quarter: 2025Q2

REPORT INFORMATION
  Report Type: Report from Study
  Country: US (occurrence: US)
  Receive Date: 20231018
  Receipt Date: 20250416
  Transmission Date: 20250716
  Serious: Yes (Hospitalization)
  Sender: ABBVIE
  Company Number: US-ABBVIE-5453223

PATIENT
  Age: 61 Year
  Sex: Female
  Weight: 59 kg

DRUGS (16)
  1. HUMIRA [Suspect]
     Active Substance: ADALIMUMAB
     Indication: Colitis ulcerative
     Dosage: 40MG/0/4ML
     Route: 058
     Dates: start: 20131126, end: 20181120
  2. HUMIRA [Suspect]
     Active Substance: ADALIMUMAB
     Dosage: 40MG/0/4ML
     Route: 058
     Dates: start: 20190523
  3. FERROUS SULFATE [Concomitant]
     Active Substance: FERROUS SULFATE
     Indication: Anaemia
     Route: 048
     Dates: start: 20131122
  4. MICROGESTIN [Concomitant]
     Active Substance: ETHINYL ESTRADIOL\NORETHINDRONE ACETATE
     Indication: Menopausal symptoms
     Dosage: DOSE UNIT: 1/20 MC/MCG
     Route: 048
     Dates: start: 2013
  5. BIOTIN [Concomitant]
     Active Substance: BIOTIN
     Indication: Nail disorder
     Route: 048
     Dates: start: 20140215
  6. IRON [Concomitant]
     Active Substance: IRON
     Indication: Haemoglobin decreased
     Route: 048
     Dates: start: 20140215
  7. ANASTROZOLE [Concomitant]
     Active Substance: ANASTROZOLE
     Indication: Hormone therapy
     Route: 048
     Dates: start: 20190315
  8. BUPROPION [Concomitant]
     Active Substance: BUPROPION
     Indication: Depression
     Route: 048
     Dates: start: 20230404
  9. GABAPENTIN [Concomitant]
     Active Substance: GABAPENTIN
     Indication: Insomnia
     Route: 048
     Dates: start: 20230416
  10. TRAZODONE [Concomitant]
     Active Substance: TRAZODONE HYDROCHLORIDE
     Indication: Insomnia
     Route: 048
     Dates: start: 20170303
  11. CLONAZEPAM [Concomitant]
     Active Substance: CLONAZEPAM
     Indication: Anxiety
     Route: 048
     Dates: start: 20131208
  12. SODIUM CHLORIDE [Concomitant]
     Active Substance: SODIUM CHLORIDE
     Indication: Catheter placement
     Route: 040
     Dates: start: 20231013, end: 20231014
  13. TENECTEPLASE [Concomitant]
     Active Substance: TENECTEPLASE
     Indication: Anticoagulant therapy
     Route: 040
     Dates: start: 20231013, end: 20231013
  14. IOHEXOL [Concomitant]
     Active Substance: IOHEXOL
     Indication: Product used for unknown indication
     Route: 040
     Dates: start: 20231013, end: 20231013
  15. ACETAMINOPHEN [Concomitant]
     Active Substance: ACETAMINOPHEN
     Indication: Pain management
     Route: 048
     Dates: start: 20231013, end: 20231015
  16. LORAZEPAM [Concomitant]
     Active Substance: LORAZEPAM
     Indication: Anxiety
     Route: 040
     Dates: start: 20231013, end: 20231013

REACTIONS (5)
  - Ischaemic stroke [Recovered/Resolved]
  - Confusional state [Recovered/Resolved]
  - Dysarthria [Recovered/Resolved]
  - Dysphagia [Recovered/Resolved]
  - Ataxia [Recovered/Resolved]

NARRATIVE: CASE EVENT DATE: 20231013
